FAERS Safety Report 16332043 (Version 1)
Quarter: 2019Q2

REPORT INFORMATION
  Report Type: Other
  Country: CA (occurrence: CA)
  Receive Date: 20190520
  Receipt Date: 20190520
  Transmission Date: 20190711
  Serious: Yes (Hospitalization, Other)
  Sender: FDA-Public Use
  Company Number: CA-APOTEX-2019AP013868

PATIENT
  Age: 14 Month
  Sex: Female
  Weight: 8 kg

DRUGS (1)
  1. LEVETIRACETAM. [Suspect]
     Active Substance: LEVETIRACETAM
     Indication: GENERALISED TONIC-CLONIC SEIZURE
     Dosage: 95 MG, BID, 2 EVERY 1 DAY
     Route: 048

REACTIONS (4)
  - Crying [Recovered/Resolved]
  - Irritability [Recovered/Resolved]
  - Childhood psychosis [Recovered/Resolved]
  - Moaning [Recovered/Resolved]
